FAERS Safety Report 14249831 (Version 5)
Quarter: 2018Q3

REPORT INFORMATION
  Report Type: Spontaneous
  Country: DE (occurrence: DE)
  Receive Date: 20171205
  Receipt Date: 20180821
  Transmission Date: 20181010
  Serious: Yes (Life-Threatening, Hospitalization, Other)
  Sender: FDA-Public Use
  Company Number: DE-MACLEODS PHARMACEUTICALS US LTD-MAC2017006431

PATIENT

DRUGS (8)
  1. GRIPPOSTAD C [Concomitant]
     Indication: NASOPHARYNGITIS
     Dosage: UNK
     Route: 065
     Dates: start: 201501
  2. PANTOPRAZOLE [Suspect]
     Active Substance: PANTOPRAZOLE
     Indication: NASOPHARYNGITIS
     Dosage: UNK
     Route: 065
     Dates: start: 201501
  3. OMEPRAZOLE. [Suspect]
     Active Substance: OMEPRAZOLE
     Indication: NASOPHARYNGITIS
     Dosage: UNK
     Route: 065
     Dates: start: 201501
  4. PANTOPRAZOLE [Suspect]
     Active Substance: PANTOPRAZOLE
     Dosage: 0.2 MG, UNK, ORAL PROVOCATION TEST: 0.2 MG
     Route: 048
     Dates: start: 2015
  5. PANTOPRAZOLE [Suspect]
     Active Substance: PANTOPRAZOLE
     Dosage: 2 MG, UNK, ORAL PROVOCATION TEST: 2 MG
     Route: 048
     Dates: start: 2015
  6. PANTOPRAZOLE [Suspect]
     Active Substance: PANTOPRAZOLE
     Dosage: 5 MG, UNK, ORAL PROVOCATION TEST: 5 MG
     Route: 048
     Dates: start: 2015
  7. TILIDINE [Concomitant]
     Active Substance: TILIDINE
     Indication: PRODUCT USED FOR UNKNOWN INDICATION
     Dosage: UNK
     Route: 065
     Dates: start: 201501
  8. TILIDINE [Concomitant]
     Active Substance: TILIDINE
     Indication: NASOPHARYNGITIS

REACTIONS (11)
  - Nausea [Recovered/Resolved]
  - Type I hypersensitivity [Unknown]
  - Off label use [Recovered/Resolved]
  - Pruritus generalised [Unknown]
  - Headache [Recovered/Resolved]
  - Skin disorder [Recovered/Resolved]
  - Dyspnoea [Unknown]
  - Cold sweat [Recovered/Resolved]
  - Skin lesion [Unknown]
  - Cardiovascular disorder [Unknown]
  - Rash generalised [Recovered/Resolved]

NARRATIVE: CASE EVENT DATE: 201501
